FAERS Safety Report 15191168 (Version 3)
Quarter: 2018Q3

REPORT INFORMATION
  Report Type: Report from Study
  Country: ES (occurrence: ES)
  Receive Date: 20180724
  Receipt Date: 20180917
  Transmission Date: 20181010
  Serious: Yes (Hospitalization)
  Sender: FDA-Public Use
  Company Number: ES-CELGENEUS-ESP-20180705797

PATIENT
  Age: 5 Year
  Sex: Female
  Weight: 23.8 kg

DRUGS (16)
  1. FENTANYL. [Concomitant]
     Active Substance: FENTANYL
     Indication: HEADACHE
     Dosage: 12.5 MICROGRAM
     Route: 062
     Dates: start: 20180706, end: 20180720
  2. AMITRIPTYLINE [Concomitant]
     Active Substance: AMITRIPTYLINE
     Indication: PROPHYLAXIS
     Dosage: 10 MILLIGRAM
     Route: 048
     Dates: start: 20180605
  3. METAMIZOL [Concomitant]
     Active Substance: METAMIZOLE SODIUM
     Route: 048
     Dates: start: 20180704
  4. FENTANYL. [Concomitant]
     Active Substance: FENTANYL
     Dosage: .35 MICROGRAM
     Route: 062
     Dates: start: 20180703, end: 20180705
  5. FLUCONAZOL [Concomitant]
     Active Substance: FLUCONAZOLE
     Indication: FEBRILE NEUTROPENIA
     Dosage: 140 MILLIGRAM
     Route: 048
     Dates: start: 20180728
  6. LIPOSOMAL AMPHOTERICIN B [Concomitant]
     Active Substance: AMPHOTERICIN B
     Indication: FEBRILE NEUTROPENIA
     Route: 041
     Dates: start: 20180726, end: 20180727
  7. DEXAMETHASONE. [Concomitant]
     Active Substance: DEXAMETHASONE
     Dosage: 3?2?3 MILLIGRAM
     Route: 065
     Dates: start: 20180706
  8. METAMIZOL [Concomitant]
     Active Substance: METAMIZOLE SODIUM
     Indication: PROPHYLAXIS
     Dosage: 500 MILLIGRAM
     Route: 048
     Dates: start: 20180702, end: 20180703
  9. METAMIZOL [Concomitant]
     Active Substance: METAMIZOLE SODIUM
     Dosage: 500 MILLIGRAM
     Route: 048
     Dates: start: 20180706
  10. ONDANSETRON [Concomitant]
     Active Substance: ONDANSETRON
     Indication: PROPHYLAXIS
     Dosage: 4 MILLIGRAM
     Route: 060
     Dates: start: 20180727, end: 20180729
  11. OMEPRAZOLE. [Concomitant]
     Active Substance: OMEPRAZOLE
     Indication: GASTRITIS PROPHYLAXIS
     Dosage: 10 MILLIGRAM
     Route: 048
     Dates: start: 20180717
  12. CC?4047 [Suspect]
     Active Substance: POMALIDOMIDE
     Indication: BRAIN NEOPLASM
     Dosage: 2 MILLIGRAM
     Route: 048
     Dates: start: 20180703, end: 20180716
  13. FENTANYL. [Concomitant]
     Active Substance: FENTANYL
     Dosage: .17 MICROGRAM
     Route: 062
     Dates: start: 20180605, end: 20180702
  14. DEXAMETHASONE. [Concomitant]
     Active Substance: DEXAMETHASONE
     Indication: HEADACHE
     Dosage: .5 MILLIGRAM
     Route: 065
     Dates: start: 20180701, end: 20180702
  15. SULFAMETOXAZOL/TRIMETROPIN [Concomitant]
     Indication: ANTIFUNGAL PROPHYLAXIS
     Dosage: 200/40 MG
     Route: 048
     Dates: start: 20180720
  16. MACROGOL [Concomitant]
     Active Substance: POLYETHYLENE GLYCOLS
     Indication: PROCTALGIA
     Route: 048
     Dates: start: 20180717

REACTIONS (2)
  - Anorectal infection [Not Recovered/Not Resolved]
  - Neutropenia [Not Recovered/Not Resolved]

NARRATIVE: CASE EVENT DATE: 20180716
